FAERS Safety Report 19582755 (Version 1)
Quarter: 2021Q3

REPORT INFORMATION
  Report Type: Spontaneous
  Country: US (occurrence: US)
  Receive Date: 20210720
  Receipt Date: 20210720
  Transmission Date: 20211014
  Serious: No
  Sender: FDA-Public Use
  Company Number: None

PATIENT
  Age: 72 Year
  Sex: Male

DRUGS (2)
  1. INSULIN (INSULIN, GLARGINE, HUMAN 100 UNT/ML INJ) [Suspect]
     Active Substance: INSULIN GLARGINE
     Indication: DIABETES MELLITUS
     Dosage: ?          OTHER STRENGTH:100 UNT/ML;OTHER DOSE:30 UNITS;?
     Dates: start: 20210111, end: 20210111
  2. BAMLANIVIMAB (EUA) (BAMLANIVIMAB) (EUA) [Suspect]
     Active Substance: BAMLANIVIMAB\ETESEVIMAB
     Indication: COVID-19
     Route: 042
     Dates: start: 20210111, end: 20210111

REACTIONS (3)
  - Hypoglycaemia [None]
  - Delirium [None]
  - Pyrexia [None]

NARRATIVE: CASE EVENT DATE: 20210111
